FAERS Safety Report 24783273 (Version 8)
Quarter: 2025Q2

REPORT INFORMATION
  Report Type: Spontaneous
  Country: US (occurrence: US)
  Receive Date: 20241227
  Receipt Date: 20250610
  Transmission Date: 20250716
  Serious: Yes (Hospitalization, Other)
  Sender: BIOVITRUM
  Company Number: US-BIOVITRUM-2024-US-016567

PATIENT
  Age: 84 Year
  Sex: Female

DRUGS (2)
  1. VONJO [Suspect]
     Active Substance: PACRITINIB
     Indication: Myelofibrosis
     Route: 048
  2. VONJO [Suspect]
     Active Substance: PACRITINIB
     Route: 048
     Dates: start: 20241219

REACTIONS (11)
  - Diarrhoea [Unknown]
  - Off label use [Not Recovered/Not Resolved]
  - Nasopharyngitis [Unknown]
  - Productive cough [Unknown]
  - Nasal discharge discolouration [Unknown]
  - Pyrexia [Unknown]
  - Cerebral haemorrhage [Unknown]
  - Fatigue [Unknown]
  - Haemoglobin decreased [Unknown]
  - Speech disorder [Unknown]
  - Sciatica [Unknown]

NARRATIVE: CASE EVENT DATE: 20241001
